FAERS Safety Report 6680275-9 (Version None)
Quarter: 2010Q2

REPORT INFORMATION
  Report Type: 
  Country: None (occurrence: None)
  Receive Date: 20100408
  Receipt Date: 20100401
  Transmission Date: 20101027
  Serious: Yes (Hospitalization)
  Sender: FDA-Public Use
  Company Number: WNZ/NEZ/10/0010540

PATIENT
  Age: 82 Year
  Sex: Female

DRUGS (5)
  1. OMEPRAZOLE [Suspect]
     Indication: GASTRITIS
     Dosage: 1 D, ORAL
     Route: 048
     Dates: start: 20091216
  2. SIMVASTATIN [Concomitant]
  3. DOMPERIDONE (DOMPERIDONE) [Concomitant]
  4. SOTALOL HCL [Concomitant]
  5. BUDESONIDE [Concomitant]

REACTIONS (2)
  - CHEST PAIN [None]
  - DYSPEPSIA [None]
